FAERS Safety Report 4682492-6 (Version None)
Quarter: 2005Q2

REPORT INFORMATION
  Report Type: 
  Country: None (occurrence: None)
  Receive Date: 20050602
  Receipt Date: 20050602
  Transmission Date: 20051028
  Serious: No
  Sender: FDA-Public Use
  Company Number: None

PATIENT
  Sex: Male

DRUGS (6)
  1. RITUXAN [Suspect]
  2. THALIDOMIDE [Suspect]
  3. PROCARBAZINE [Suspect]
  4. ETOPOSIDE [Suspect]
  5. PREDNISONE TAB [Suspect]
  6. CYTOXAN [Suspect]

REACTIONS (3)
  - CONTUSION [None]
  - EXCORIATION [None]
  - ROAD TRAFFIC ACCIDENT [None]
